FAERS Safety Report 4930757-2 (Version None)
Quarter: 2006Q1

REPORT INFORMATION
  Report Type: 
  Country: None (occurrence: None)
  Receive Date: 20060302
  Receipt Date: 20060221
  Transmission Date: 20060701
  Serious: Yes (Other)
  Sender: FDA-Public Use
  Company Number: US-ABBOTT-06P-163-0326112-00

PATIENT
  Age: 24 Year
  Sex: Female

DRUGS (5)
  1. ERYTHROMYCIN [Suspect]
     Indication: BORRELIA INFECTION
     Route: 042
  2. ERYTHROMYCIN [Suspect]
     Route: 048
  3. DEXAMETHASONE SODIUM PHOSPHATE [Concomitant]
     Indication: PROPHYLAXIS
     Route: 042
  4. DIPHENHYDRAMINE [Concomitant]
     Indication: PROPHYLAXIS
     Route: 042
  5. CEFTRIAXONE [Concomitant]
     Indication: DRUG USE FOR UNKNOWN INDICATION
     Route: 042

REACTIONS (1)
  - JARISCH-HERXHEIMER REACTION [None]
